FAERS Safety Report 19689350 (Version 1)
Quarter: 2021Q3

REPORT INFORMATION
  Report Type: Spontaneous
  Country: US (occurrence: US)
  Receive Date: 20210810
  Receipt Date: 20210810
  Transmission Date: 20211014
  Serious: Yes (Hospitalization)
  Sender: FDA-Public Use
  Company Number: None

PATIENT
  Sex: Female

DRUGS (35)
  1. AZELASTINE. [Concomitant]
     Active Substance: AZELASTINE HYDROCHLORIDE
  2. HYDROCHLOROT [Concomitant]
     Active Substance: HYDROCHLOROTHIAZIDE
  3. PREDNISONE. [Concomitant]
     Active Substance: PREDNISONE
  4. CLONIDINE. [Concomitant]
     Active Substance: CLONIDINE
  5. AMLODIPINE [Concomitant]
     Active Substance: AMLODIPINE BESYLATE
  6. CARBAMAZEPIN [Concomitant]
     Active Substance: CARBAMAZEPINE
  7. FUROSEMIDE. [Concomitant]
     Active Substance: FUROSEMIDE
  8. PREMARIN [Concomitant]
     Active Substance: ESTROGENS, CONJUGATED
  9. CLACIUM CARB [Concomitant]
  10. NINJACOF [Concomitant]
     Active Substance: CHLOPHEDIANOL\PYRILAMINE MALEATE
  11. POT CHLORIDE ER [Concomitant]
  12. SINGULAIR [Concomitant]
     Active Substance: MONTELUKAST SODIUM
  13. TEGRETOL [Concomitant]
     Active Substance: CARBAMAZEPINE
  14. TOPROL XL [Concomitant]
     Active Substance: METOPROLOL SUCCINATE
  15. VANCOMYCIN [Concomitant]
     Active Substance: VANCOMYCIN
  16. VITAMIN D [Concomitant]
     Active Substance: VITAMIN D NOS
  17. XEOPENEX NEB [Concomitant]
  18. FORTEO [Suspect]
     Active Substance: TERIPARATIDE
     Indication: OSTEOPOROSIS
     Dosage: ?          OTHER STRENGTH:600/2.4 UG/ML;?
     Route: 058
     Dates: start: 20210506
  19. DIFICID [Concomitant]
     Active Substance: FIDAXOMICIN
  20. DULERA [Concomitant]
     Active Substance: FORMOTEROL FUMARATE DIHYDRATE\MOMETASONE FUROATE
  21. EPINEPHRINE. [Concomitant]
     Active Substance: EPINEPHRINE
  22. FAMOTIDINE. [Concomitant]
     Active Substance: FAMOTIDINE
  23. OXYCODONE AND ACETAMINOPHEN [Concomitant]
     Active Substance: ACETAMINOPHEN\OXYCODONE HYDROCHLORIDE
  24. PULMICORT TURBUHALER [Concomitant]
     Active Substance: BUDESONIDE
  25. VALSARTAN. [Concomitant]
     Active Substance: VALSARTAN
  26. VITAMIN B2 [Concomitant]
     Active Substance: RIBOFLAVIN
  27. TOPIRAMATE. [Concomitant]
     Active Substance: TOPIRAMATE
  28. ADVIL [Concomitant]
     Active Substance: IBUPROFEN
  29. FLUCONAZOLE. [Concomitant]
     Active Substance: FLUCONAZOLE
  30. HYDROMET [Concomitant]
     Active Substance: HOMATROPINE METHYLBROMIDE\HYDROCODONE BITARTRATE
  31. MINOXIDIL. [Concomitant]
     Active Substance: MINOXIDIL
  32. ONDANSETRON ODT [Concomitant]
     Active Substance: ONDANSETRON
  33. SPIRONOLACT [Concomitant]
     Active Substance: SPIRONOLACTONE
  34. SYMBICORT [Concomitant]
     Active Substance: BUDESONIDE\FORMOTEROL FUMARATE DIHYDRATE
  35. TRAZODONE [Concomitant]
     Active Substance: TRAZODONE HYDROCHLORIDE

REACTIONS (2)
  - Product dose omission issue [None]
  - Bacterial test positive [None]
